FAERS Safety Report 6091018-4 (Version None)
Quarter: 2009Q1

REPORT INFORMATION
  Report Type: 
  Country: None (occurrence: None)
  Receive Date: 20090219
  Receipt Date: 20090219
  Transmission Date: 20090719
  Serious: No
  Sender: FDA-Public Use
  Company Number: None

PATIENT
  Sex: Female
  Weight: 51.2565 kg

DRUGS (1)
  1. METOPROLOL SUCCINATE [Suspect]
     Dosage: 25 MG ONCE DAILY PO
     Route: 048
     Dates: start: 20081027, end: 20081108

REACTIONS (3)
  - ABDOMINAL PAIN UPPER [None]
  - NO THERAPEUTIC RESPONSE [None]
  - PRODUCT QUALITY ISSUE [None]
